FAERS Safety Report 4727436-3 (Version None)
Quarter: 2005Q3

REPORT INFORMATION
  Report Type: 
  Country: None (occurrence: None)
  Receive Date: 20050727
  Receipt Date: 20050727
  Transmission Date: 20060218
  Serious: Yes (Hospitalization)
  Sender: FDA-Public Use
  Company Number: None

PATIENT
  Age: 62 Year
  Sex: Male
  Weight: 92.5 kg

DRUGS (15)
  1. HEPARIN [Suspect]
     Dosage: 1000 UNITS DAILY
     Dates: start: 20050122, end: 20050201
  2. HEPARIN [Suspect]
     Indication: ANTICOAGULANT THERAPY
     Dosage: 894 UNITS /HR
     Dates: start: 20050202
  3. PREVACID [Concomitant]
  4. ASPIRIN [Concomitant]
  5. SYNTHROID [Concomitant]
  6. LEVAQUIN [Concomitant]
  7. AZACTAM [Concomitant]
  8. CLEOCIN [Concomitant]
  9. DIFLUCAN [Concomitant]
  10. AMIODARONE [Concomitant]
  11. DIGOXIN [Concomitant]
  12. BUMEX [Concomitant]
  13. DOPAMINE HCL [Concomitant]
  14. WARFARIN SODIUM [Concomitant]
  15. PRIMAXIN [Concomitant]

REACTIONS (1)
  - HEPARIN-INDUCED THROMBOCYTOPENIA [None]
